FAERS Safety Report 16827786 (Version 5)
Quarter: 2021Q4

REPORT INFORMATION
  Report Type: Spontaneous
  Country: SE (occurrence: SE)
  Receive Date: 20190919
  Receipt Date: 20211217
  Transmission Date: 20220303
  Serious: Yes (Other)
  Sender: FDA-Public Use
  Company Number: SE-002147023-PHHY2019SE207867

PATIENT
  Age: 11 Year
  Sex: Male

DRUGS (4)
  1. ARIPIPRAZOLE [Suspect]
     Active Substance: ARIPIPRAZOLE
     Indication: Product used for unknown indication
     Dosage: UNK
     Route: 065
  2. METHYLPHENIDATE HYDROCHLORIDE [Suspect]
     Active Substance: METHYLPHENIDATE HYDROCHLORIDE
     Indication: Product used for unknown indication
     Dosage: UNK
     Route: 065
  3. CLONIDINE [Concomitant]
     Active Substance: CLONIDINE
     Indication: Product used for unknown indication
     Dosage: UNK
     Route: 065
  4. LITHIUM [Concomitant]
     Active Substance: LITHIUM
     Indication: Product used for unknown indication
     Dosage: UNK
     Route: 065

REACTIONS (8)
  - Withdrawal syndrome [Recovered/Resolved]
  - Trismus [Recovered/Resolved]
  - Intentional self-injury [Recovered/Resolved]
  - Dystonia [Recovered/Resolved]
  - Muscle contracture [Recovered/Resolved]
  - Joint stiffness [Recovered/Resolved]
  - Affect lability [Recovered/Resolved]
  - Aggression [Recovered/Resolved]
